FAERS Safety Report 11999185 (Version 2)
Quarter: 2016Q1

REPORT INFORMATION
  Report Type: Report from Study
  Country: ID (occurrence: ID)
  Receive Date: 20160204
  Receipt Date: 20160308
  Transmission Date: 20160526
  Serious: Yes (Other)
  Sender: FDA-Public Use
  Company Number: ID-ROCHE-1705658

PATIENT
  Age: 51 Year
  Sex: Female

DRUGS (1)
  1. HERCEPTIN [Suspect]
     Active Substance: TRASTUZUMAB
     Indication: BREAST CANCER METASTATIC
     Route: 065

REACTIONS (3)
  - Vomiting [Unknown]
  - Metastases to central nervous system [Unknown]
  - Asthenia [Unknown]

NARRATIVE: CASE EVENT DATE: 20160307
